FAERS Safety Report 10533760 (Version 1)
Quarter: 2014Q4

REPORT INFORMATION
  Report Type: Spontaneous
  Country: US (occurrence: None)
  Receive Date: 20141021
  Receipt Date: 20141021
  Transmission Date: 20150529
  Serious: Yes (Other)
  Sender: FDA-Public Use
  Company Number: None

PATIENT
  Age: 76 Year
  Sex: Female
  Weight: 75.3 kg

DRUGS (2)
  1. DEXAMETHASONE. [Suspect]
     Active Substance: DEXAMETHASONE
     Indication: VIRAL INFECTION
     Dosage: 6 PILLS PER DAY FOR 3 DAYS ONCE DAILY TAKEN BY MOUTH
     Route: 048
     Dates: start: 20141009
  2. DEXAMETHASONE. [Suspect]
     Active Substance: DEXAMETHASONE
     Indication: COUGH
     Dosage: 6 PILLS PER DAY FOR 3 DAYS ONCE DAILY TAKEN BY MOUTH
     Route: 048
     Dates: start: 20141009

REACTIONS (5)
  - Gastric disorder [None]
  - Insomnia [None]
  - Headache [None]
  - Flushing [None]
  - Eye movement disorder [None]

NARRATIVE: CASE EVENT DATE: 20141009
